FAERS Safety Report 22368877 (Version 2)
Quarter: 2023Q2

REPORT INFORMATION
  Report Type: Spontaneous
  Country: US (occurrence: US)
  Receive Date: 20230525
  Receipt Date: 20230604
  Transmission Date: 20230721
  Serious: Yes (Hospitalization)
  Sender: FDA-Public Use
  Company Number: US-TEVA-2023-US-2889330

PATIENT
  Age: 24 Year
  Sex: Male

DRUGS (4)
  1. PREDNISONE [Suspect]
     Active Substance: PREDNISONE
     Indication: Focal segmental glomerulosclerosis
     Dosage: 80 MILLIGRAM DAILY;
     Route: 065
  2. CYCLOSPORINE [Suspect]
     Active Substance: CYCLOSPORINE
     Indication: Focal segmental glomerulosclerosis
     Route: 065
  3. VORICONAZOLE [Suspect]
     Active Substance: VORICONAZOLE
     Indication: Evidence based treatment
     Route: 065
  4. ETHACRYNIC ACID [Suspect]
     Active Substance: ETHACRYNIC ACID
     Indication: Focal segmental glomerulosclerosis
     Route: 065

REACTIONS (3)
  - Infection [Unknown]
  - Necrotising fasciitis [Unknown]
  - Drug ineffective [Unknown]
